FAERS Safety Report 23756465 (Version 2)
Quarter: 2024Q2

REPORT INFORMATION
  Report Type: Spontaneous
  Country: HR (occurrence: HR)
  Receive Date: 20240418
  Receipt Date: 20240618
  Transmission Date: 20240716
  Serious: No
  Sender: FDA-Public Use
  Company Number: HR-009507513-2404HRV006678

PATIENT
  Age: 45 Year
  Sex: Male

DRUGS (1)
  1. DELSTRIGO [Suspect]
     Active Substance: DORAVIRINE\LAMIVUDINE\TENOFOVIR DISOPROXIL FUMARATE
     Indication: HIV infection
     Dosage: UNK
     Route: 048
     Dates: start: 20230517

REACTIONS (5)
  - Hepatitis A antibody positive [Unknown]
  - Hepatitis B surface antigen positive [Unknown]
  - Hepatitis B core antibody positive [Unknown]
  - Hepatitis B e antibody positive [Unknown]
  - Latent syphilis [Unknown]

NARRATIVE: CASE EVENT DATE: 20230517
